FAERS Safety Report 9104156 (Version 1)
Quarter: 2013Q1

REPORT INFORMATION
  Report Type: Spontaneous
  Country: HU (occurrence: HU)
  Receive Date: 20130219
  Receipt Date: 20130219
  Transmission Date: 20140127
  Serious: Yes (Other)
  Sender: FDA-Public Use
  Company Number: PHHY2013HU014701

PATIENT
  Age: 69 Year
  Sex: Female

DRUGS (9)
  1. ACLASTA [Suspect]
     Indication: OSTEOPOROSIS
     Dosage: UNK UKN, UNK
     Route: 042
     Dates: start: 20111208
  2. ACLASTA [Suspect]
     Dosage: UNK UKN, UNK
     Route: 042
     Dates: start: 20130110
  3. PROENZI 3 [Concomitant]
     Indication: ARTHROPATHY
     Dosage: UNK UKN, UNK
  4. NOACID [Concomitant]
     Indication: GASTROOESOPHAGEAL REFLUX DISEASE
     Dosage: UNK UKN, UNK
  5. LAVESTRA [Concomitant]
     Indication: HYPERTENSION
     Dosage: UNK UKN, UNK
  6. CIFRAN [Concomitant]
     Indication: GASTROINTESTINAL DISORDER
     Dosage: UNK UKN, UNK
  7. KLION [Concomitant]
     Dosage: UNK UKN, UNK
  8. VIT D [Concomitant]
     Indication: OSTEOPOROSIS
     Dosage: UNK UKN, UNK
  9. CALCIUM [Concomitant]
     Indication: OSTEOPOROSIS
     Dosage: UNK UKN, UNK

REACTIONS (4)
  - Fungal infection [Recovering/Resolving]
  - Cheilitis [Not Recovered/Not Resolved]
  - Oral pain [Not Recovered/Not Resolved]
  - Stomatitis [Not Recovered/Not Resolved]
